FAERS Safety Report 8866941 (Version 1)
Quarter: 2012Q4

REPORT INFORMATION
  Report Type: 
  Country: US (occurrence: US)
  Receive Date: 20121025
  Receipt Date: 20121025
  Transmission Date: 20130627
  Serious: No
  Sender: FDA-Public Use
  Company Number: US-AMGEN-USASP2012013924

PATIENT
  Age: 78 Year
  Sex: Female
  Weight: 63.49 kg

DRUGS (11)
  1. ENBREL [Suspect]
     Indication: RHEUMATOID ARTHRITIS
     Dosage: 50 mg, qwk
  2. FOSAMAX [Concomitant]
     Dosage: 10 mg, UNK
  3. METHOTREXATE [Concomitant]
     Dosage: 2.5 mg, UNK
  4. OMEPRAZOLE [Concomitant]
     Dosage: 40 mg, UNK
  5. ADVAIR [Concomitant]
  6. TENORMIN [Concomitant]
     Dosage: 100 mg, UNK
  7. POTASSIUM [Concomitant]
     Dosage: 75 mg, UNK
  8. CALCIUM [Concomitant]
     Dosage: UNK
  9. MAGNESIUM [Concomitant]
     Dosage: 400 mg, UNK
  10. XOLAIR [Concomitant]
     Dosage: 150 mg, UNK
  11. FOLIC ACID [Concomitant]
     Dosage: 200 mug, UNK

REACTIONS (4)
  - Rheumatoid arthritis [Unknown]
  - Asthma [Recovered/Resolved]
  - Increased tendency to bruise [Unknown]
  - Upper respiratory tract infection [Recovered/Resolved]
